FAERS Safety Report 7739852-6 (Version None)
Quarter: 2011Q3

REPORT INFORMATION
  Report Type: 
  Country: None (occurrence: None)
  Receive Date: 20110909
  Receipt Date: 20110831
  Transmission Date: 20111222
  Serious: Yes (Other)
  Sender: FDA-Public Use
  Company Number: PHHY2011JP63958

PATIENT
  Age: 14 Year
  Sex: Male

DRUGS (2)
  1. TEGRETOL [Suspect]
     Indication: DEPRESSION
     Dosage: 200 MG IN THE MORNING AND 200 MG IN THE EVENING
     Route: 048
     Dates: start: 20090101, end: 20110713
  2. TEGRETOL [Suspect]
     Dosage: 100 MG, TWICE DAILY
     Route: 048
     Dates: start: 20110714

REACTIONS (2)
  - HEPATIC FUNCTION ABNORMAL [None]
  - CHOLESTASIS [None]
